FAERS Safety Report 15467809 (Version 1)
Quarter: 2018Q4

REPORT INFORMATION
  Report Type: Spontaneous
  Country: JP (occurrence: JP)
  Receive Date: 20181005
  Receipt Date: 20181005
  Transmission Date: 20190204
  Serious: Yes (Hospitalization)
  Sender: FDA-Public Use
  Company Number: JP-ALK-ABELLO A/S-2018AA002581

PATIENT

DRUGS (1)
  1. MITICURE MITE SUBLINGUAL TABLET [Suspect]
     Active Substance: DERMATOPHAGOIDES FARINAE\DERMATOPHAGOIDES PTERONYSSINUS
     Indication: PRODUCT USED FOR UNKNOWN INDICATION
     Route: 060

REACTIONS (1)
  - Hospitalisation [Unknown]
